FAERS Safety Report 16429661 (Version 1)
Quarter: 2019Q2

REPORT INFORMATION
  Report Type: Spontaneous
  Country: FR (occurrence: FR)
  Receive Date: 20190614
  Receipt Date: 20190614
  Transmission Date: 20190711
  Serious: Yes (Hospitalization)
  Sender: FDA-Public Use
  Company Number: FR-TEVA-2019-FR-1061954

PATIENT
  Age: 88 Year
  Sex: Male
  Weight: 80 kg

DRUGS (13)
  1. BISOPROLOL (ACID FUMARATE [Concomitant]
     Dosage: 1.25 MILLIGRAM DAILY;
     Route: 048
     Dates: start: 20181003
  2. ALDACTONE [Concomitant]
     Active Substance: SPIRONOLACTONE
     Dosage: NON-INQUIRY DOSAGE
     Route: 048
     Dates: start: 20181016
  3. XARELTO [Suspect]
     Active Substance: RIVAROXABAN
     Indication: ATRIAL FIBRILLATION
     Dosage: 1 DOSAGE FORMS DAILY;
     Route: 048
     Dates: start: 20180827, end: 20181210
  4. PARIET 20 MG, GASTRO-RESISTANT TABLET [Concomitant]
     Dosage: 1 DOSAGE FORMS DAILY;
     Route: 048
  5. PARACETAMOL [Concomitant]
     Active Substance: ACETAMINOPHEN
     Dosage: UNSPECIFIED DOSAGE
     Route: 048
  6. BISOPROLOL (FUMARATE ACIDE DE) [Suspect]
     Active Substance: BISOPROLOL FUMARATE
     Route: 048
     Dates: start: 20180810
  7. BRILIC 90 MG, ORODISPERSIBLE TABLET [Concomitant]
     Dosage: 2 DOSAGE FORMS DAILY;
     Route: 048
     Dates: start: 20180726, end: 20180827
  8. BISOPROLOL (ACID FUMARATE [Concomitant]
     Route: 048
     Dates: end: 20180810
  9. LEVEMIR [Concomitant]
     Active Substance: INSULIN DETEMIR
     Dosage: 16 IU (INTERNATIONAL UNIT) DAILY;
     Route: 058
  10. KARDEGIC [Suspect]
     Active Substance: ASPIRIN DL-LYSINE
     Indication: MYOCARDIAL ISCHAEMIA
     Dosage: 1 DOSAGE FORMS DAILY;
     Route: 048
     Dates: end: 201811
  11. VALSARTAN. [Concomitant]
     Active Substance: VALSARTAN
     Dosage: 40 MILLIGRAM DAILY;
     Route: 048
  12. MODOPAR 125 (100 MG / 25 MG), CAPSULE [Concomitant]
     Dosage: NON-INQUIRY DOSAGE
     Route: 048
  13. MODOPAR 62.5 (50 MG / 12.5 MG), CAPSULE [Concomitant]
     Dosage: NON-INQUIRY DOSAGE
     Route: 048

REACTIONS (3)
  - Melaena [Recovered/Resolved]
  - Gastrointestinal haemorrhage [Recovered/Resolved]
  - Anaemia [Recovered/Resolved]

NARRATIVE: CASE EVENT DATE: 20180913
